FAERS Safety Report 5016886-6 (Version None)
Quarter: 2006Q2

REPORT INFORMATION
  Report Type: 
  Country: None (occurrence: None)
  Receive Date: 20060526
  Receipt Date: 20060510
  Transmission Date: 20061013
  Serious: Yes (Other)
  Sender: FDA-Public Use
  Company Number: JP200604004599

PATIENT
  Age: 45 Year
  Sex: Female

DRUGS (2)
  1. GEMZAR [Suspect]
     Indication: OVARIAN CANCER
     Dosage: 1400 MG, OTHER, INTRAVENOUS
     Route: 042
     Dates: start: 20060330
  2. PARAPLATIN [Concomitant]

REACTIONS (1)
  - VISUAL DISTURBANCE [None]
